FAERS Safety Report 7368778-5 (Version None)
Quarter: 2011Q1

REPORT INFORMATION
  Report Type: 
  Country: None (occurrence: None)
  Receive Date: 20110321
  Receipt Date: 20110321
  Transmission Date: 20110831
  Serious: Yes (Life-Threatening)
  Sender: FDA-Public Use
  Company Number: None

PATIENT
  Age: 31 Year
  Sex: Female
  Weight: 52.1637 kg

DRUGS (1)
  1. ZOLPIDEM [Suspect]
     Indication: INSOMNIA
     Dosage: 30 1 PER DAY PO
     Route: 048
     Dates: start: 20110304, end: 20110308

REACTIONS (4)
  - LEGAL PROBLEM [None]
  - LOSS OF CONSCIOUSNESS [None]
  - ACCIDENT [None]
  - AMNESIA [None]
